FAERS Safety Report 15256357 (Version 1)
Quarter: 2018Q3

REPORT INFORMATION
  Report Type: Spontaneous
  Country: US (occurrence: US)
  Receive Date: 20180718
  Receipt Date: 20180718
  Transmission Date: 20181010
  Serious: Yes (Disabling, Other)
  Sender: FDA-Public Use
  Company Number: None

PATIENT
  Age: 52 Year
  Sex: Female

DRUGS (7)
  1. L?THREONATE [Concomitant]
  2. MAGNESIUM [Concomitant]
     Active Substance: MAGNESIUM
  3. VITAMIN C [Concomitant]
     Active Substance: ASCORBIC ACID
  4. FLORASTOR [Concomitant]
     Active Substance: SACCHAROMYCES CEREVISIAE
  5. LEVOFLOXACIN. [Suspect]
     Active Substance: LEVOFLOXACIN
     Indication: INFECTION
     Route: 048
     Dates: start: 20180118, end: 20180127
  6. LIPOSOMAL [Concomitant]
     Active Substance: AMPHOTERICIN B
  7. PROBIOTICS [Concomitant]
     Active Substance: PROBIOTICS NOS

REACTIONS (27)
  - Alopecia [None]
  - Hyperthyroidism [None]
  - Tinnitus [None]
  - Hepatic enzyme increased [None]
  - Lymphocyte count increased [None]
  - Red blood cell count increased [None]
  - Muscle atrophy [None]
  - Impaired healing [None]
  - Onychomadesis [None]
  - Reaction to food additive [None]
  - Panic attack [None]
  - Blood glucose decreased [None]
  - Dizziness [None]
  - Weight decreased [None]
  - Diarrhoea [None]
  - Fungal skin infection [None]
  - Vulvovaginal mycotic infection [None]
  - Food allergy [None]
  - Musculoskeletal pain [None]
  - Tendon pain [None]
  - Neuropathy peripheral [None]
  - Pain in extremity [None]
  - Insomnia [None]
  - Platelet count increased [None]
  - Dyspepsia [None]
  - Vision blurred [None]
  - Thyroid disorder [None]

NARRATIVE: CASE EVENT DATE: 20180118
